FAERS Safety Report 10740497 (Version 3)
Quarter: 2015Q1

REPORT INFORMATION
  Report Type: Spontaneous
  Country: NL (occurrence: NL)
  Receive Date: 20150127
  Receipt Date: 20150305
  Transmission Date: 20150721
  Serious: Yes (Hospitalization)
  Sender: FDA-Public Use
  Company Number: NL-JNJFOC-20150110338

PATIENT
  Age: 64 Year
  Sex: Male

DRUGS (3)
  1. ITRACONAZOLE. [Suspect]
     Active Substance: ITRACONAZOLE
     Indication: ONYCHOMYCOSIS
     Route: 048
     Dates: start: 20141028, end: 20141219
  2. VENTOLIN [Concomitant]
     Active Substance: ALBUTEROL SULFATE
     Route: 055
     Dates: start: 20141210
  3. SPIRIVA [Concomitant]
     Active Substance: TIOTROPIUM BROMIDE MONOHYDRATE
     Route: 055
     Dates: start: 20100419

REACTIONS (8)
  - Arthralgia [Unknown]
  - Weight increased [Unknown]
  - Insomnia [Unknown]
  - Erythema [Unknown]
  - Oedema [Unknown]
  - Fatigue [Unknown]
  - Paraesthesia [Unknown]
  - Tinnitus [Unknown]

NARRATIVE: CASE EVENT DATE: 20141215
